FAERS Safety Report 21322810 (Version 1)
Quarter: 2022Q3

REPORT INFORMATION
  Report Type: Spontaneous
  Country: NO (occurrence: NO)
  Receive Date: 20220912
  Receipt Date: 20220912
  Transmission Date: 20221027
  Serious: Yes (Death)
  Sender: FDA-Public Use
  Company Number: None

PATIENT
  Age: 65 Year
  Sex: Male

DRUGS (3)
  1. KEYTRUDA [Suspect]
     Active Substance: PEMBROLIZUMAB
     Indication: Lung neoplasm malignant
     Dosage: 200 MG PER TREATMENT ROUND. INITIALLY AS PART OF TRIPLE THERAPY WITH CARBOPLATIN AND PEMETREXED , TH
     Dates: start: 20200505, end: 20211218
  2. CARBOPLATIN [Suspect]
     Active Substance: CARBOPLATIN
     Indication: Lung neoplasm malignant
     Dosage: BETWEEN 549 MG TO 635 MG PER TREATMENT ROUND. 4 TREATMENT ROUNDS IN TOTAL. IN TRIPLE THERAPY WITH OE
     Dates: start: 20200505, end: 20211021
  3. PEMETREXED [Suspect]
     Active Substance: PEMETREXED
     Indication: Lung cancer metastatic
     Dosage: 900 MG PER TREATMENT ROUND, AS A PART OF TRIPLE THERAPY WITH PEMBROLIZUMAB AND CARBOPLATIN. 1000 MG
     Dates: start: 20200505, end: 20211228

REACTIONS (2)
  - Infection susceptibility increased [Fatal]
  - Neurological symptom [Fatal]

NARRATIVE: CASE EVENT DATE: 20220101
